FAERS Safety Report 5001156-2 (Version None)
Quarter: 2006Q2

REPORT INFORMATION
  Report Type: 
  Country: None (occurrence: None)
  Receive Date: 20060512
  Receipt Date: 20060503
  Transmission Date: 20061013
  Serious: Yes (Hospitalization)
  Sender: FDA-Public Use
  Company Number: FR-ABBOTT-06P-056-0332605-00

PATIENT
  Age: 93 Year
  Sex: Female

DRUGS (4)
  1. ZECLAR [Suspect]
     Indication: HELICOBACTER GASTRITIS
     Route: 048
     Dates: start: 20060331, end: 20060407
  2. AMOXICILLIN [Suspect]
     Indication: HELICOBACTER GASTRITIS
     Route: 048
     Dates: start: 20060331, end: 20060407
  3. ESOMEPRAZOLE [Suspect]
     Indication: HELICOBACTER GASTRITIS
     Route: 048
     Dates: start: 20060331, end: 20060407
  4. ESOMEPRAZOLE [Suspect]

REACTIONS (3)
  - DYSPNOEA [None]
  - GENERALISED OEDEMA [None]
  - TOXIC SKIN ERUPTION [None]
